FAERS Safety Report 7320520-X (Version None)
Quarter: 2011Q1

REPORT INFORMATION
  Report Type: 
  Country: None (occurrence: None)
  Receive Date: 20110228
  Receipt Date: 20110202
  Transmission Date: 20110831
  Serious: No
  Sender: FDA-Public Use
  Company Number: US-B.I. PHARMACEUTICALS,INC./RIDGEFIELD-2011-BP-03515BP

PATIENT
  Sex: Female

DRUGS (9)
  1. PRADAXA [Suspect]
     Indication: ATRIAL FIBRILLATION
     Dosage: 300 MG
     Route: 048
     Dates: start: 20110128, end: 20110202
  2. PROBENECID [Concomitant]
     Indication: GOUTY ARTHRITIS
  3. TOPROL-XL [Concomitant]
     Indication: HYPERTENSION
  4. DIGOXIN [Concomitant]
     Indication: ATRIAL FIBRILLATION
  5. MULTIVITAMIN [Concomitant]
     Indication: PROPHYLAXIS
  6. RED YEAST RICE [Concomitant]
     Indication: PROPHYLAXIS
  7. LIDOCAINE PATCHES [Concomitant]
     Indication: PAIN
  8. COLCHICINE [Concomitant]
     Indication: GOUTY ARTHRITIS
  9. FISH OIL [Concomitant]
     Indication: PROPHYLAXIS

REACTIONS (5)
  - OROPHARYNGEAL PAIN [None]
  - FLUSHING [None]
  - HEADACHE [None]
  - SWELLING FACE [None]
  - PRURITUS [None]
